FAERS Safety Report 19861831 (Version 1)
Quarter: 2021Q3

REPORT INFORMATION
  Report Type: Spontaneous
  Country: US (occurrence: US)
  Receive Date: 20210921
  Receipt Date: 20210921
  Transmission Date: 20211014
  Serious: No
  Sender: FDA-Public Use
  Company Number: None

PATIENT
  Age: 85 Year
  Sex: Female

DRUGS (1)
  1. COLESTIPOL [Suspect]
     Active Substance: COLESTIPOL
     Indication: LOW DENSITY LIPOPROTEIN INCREASED

REACTIONS (3)
  - Bladder spasm [None]
  - Drug ineffective [None]
  - Therapy interrupted [None]

NARRATIVE: CASE EVENT DATE: 20210817
